FAERS Safety Report 5122561-X (Version None)
Quarter: 2006Q4

REPORT INFORMATION
  Report Type: 
  Country: None (occurrence: None)
  Receive Date: 20061004
  Receipt Date: 20060921
  Transmission Date: 20070319
  Serious: Yes (Other)
  Sender: FDA-Public Use
  Company Number: HQWYE422307SEP06

PATIENT
  Sex: 0

DRUGS (3)
  1. ANCARON (AMIODARONE,TABLET) [Suspect]
     Indication: ARRHYTHMIA
     Dosage: ORAL
     Route: 048
  2. ACE INHIBITOR NOS (ACE INHIBITOR NOS, ) [Suspect]
     Dosage: ORAL
     Route: 048
  3. CORTICOSTEROID NOS (CORTICOSTEROID NOS) [Concomitant]

REACTIONS (1)
  - COUGH [None]
